FAERS Safety Report 7243674-2 (Version None)
Quarter: 2011Q1

REPORT INFORMATION
  Report Type: 
  Country: None (occurrence: None)
  Receive Date: 20110119
  Receipt Date: 20110119
  Transmission Date: 20110831
  Serious: Yes (Other)
  Sender: FDA-Public Use
  Company Number: None

PATIENT
  Age: 30 Year
  Sex: Male
  Weight: 63.5036 kg

DRUGS (2)
  1. CIMZIA [Suspect]
  2. SHOTS [Concomitant]

REACTIONS (2)
  - INFLUENZA [None]
  - MIGRAINE [None]
